FAERS Safety Report 8790988 (Version 3)
Quarter: 2013Q2

REPORT INFORMATION
  Report Type: Spontaneous
  Country: US (occurrence: None)
  Receive Date: 20120910
  Receipt Date: 20130521
  Transmission Date: 20140414
  Serious: Yes (Other)
  Sender: FDA-Public Use
  Company Number: KAD201206-000360

PATIENT
  Age: 55 Year
  Sex: Male
  Weight: 78.4 kg

DRUGS (7)
  1. RIBASPHERE RIBAPAK (RIBAVIRIN) [Suspect]
     Indication: HEPATITIS C
     Dosage: 1200 MG DIALY, 600 MG TWO TIMES DAILY
     Dates: start: 20120208
  2. PEGASYS (PEGINTERFERON ALFA-2A) [Suspect]
     Indication: HEPATITIS C
     Dates: start: 201111, end: 20120810
  3. VICTRELIS [Suspect]
     Indication: HEPATITIS C
     Dosage: 4 CAPSULES
     Dates: start: 20111223, end: 201203
  4. HYDROCHLOROTHIAZIDE [Concomitant]
  5. LISINOPRIL [Concomitant]
  6. AMLODIPINE [Concomitant]
  7. ASPIRIN [Concomitant]

REACTIONS (4)
  - Anaemia [None]
  - Cardiac failure congestive [None]
  - Myocardial strain [None]
  - Treatment noncompliance [None]
